FAERS Safety Report 20545843 (Version 5)
Quarter: 2022Q2

REPORT INFORMATION
  Report Type: Report from Study
  Country: KR (occurrence: KR)
  Receive Date: 20220303
  Receipt Date: 20220610
  Transmission Date: 20220721
  Serious: Yes (Hospitalization)
  Sender: FDA-Public Use
  Company Number: KR-KOREA IPSEN Pharma-2022-04968

PATIENT
  Age: 53 Year
  Sex: Male

DRUGS (7)
  1. CABOZANTINIB [Suspect]
     Active Substance: CABOZANTINIB
     Indication: Clear cell renal cell carcinoma
     Dosage: 20 MG, QD
     Route: 048
     Dates: start: 20210204, end: 20210818
  2. METHIMAZOLE [Concomitant]
     Active Substance: METHIMAZOLE
     Indication: Hyperthyroidism
     Dosage: 5MG, THREE TIMES PER DAY (ONGOING)
     Route: 048
     Dates: start: 20210119
  3. LACTOBACILLUS ACIDOPHILUS [Concomitant]
     Active Substance: LACTOBACILLUS ACIDOPHILUS
     Indication: Prophylaxis
     Dosage: 20 (UNITS NOT PROVIDED) TWICE PER DAY
     Route: 048
     Dates: start: 20210122, end: 20210204
  4. LAFUTIDINE [Concomitant]
     Active Substance: LAFUTIDINE
     Indication: Gastrointestinal disorder prophylaxis
     Dosage: 10 MG, TWICE PER DAY (ONGOING)
     Route: 048
     Dates: start: 20210127
  5. ZOLPIDEM [Concomitant]
     Active Substance: ZOLPIDEM TARTRATE
     Indication: Insomnia
     Dosage: 10 MG, AS NEEDED
     Route: 048
     Dates: start: 20210130, end: 20210529
  6. Godex [Concomitant]
     Indication: Shock
     Dosage: 150~MG, TWICE PER DAY
     Route: 048
     Dates: start: 20210127, end: 20210407
  7. URSODIOL [Concomitant]
     Active Substance: URSODIOL
     Indication: Shock
     Dosage: 100~MG TWICE PER DAY
     Route: 048
     Dates: start: 20210123, end: 20210407

REACTIONS (2)
  - Pyrexia [Recovered/Resolved]
  - Pyrexia [Recovered/Resolved with Sequelae]

NARRATIVE: CASE EVENT DATE: 20210816
